FAERS Safety Report 6970328-X (Version None)
Quarter: 2010Q3

REPORT INFORMATION
  Report Type: 
  Country: None (occurrence: None)
  Receive Date: 20100903
  Receipt Date: 20100825
  Transmission Date: 20110219
  Serious: Yes (Hospitalization, Other)
  Sender: FDA-Public Use
  Company Number: 2010SP046157

PATIENT
  Age: 57 Year
  Sex: Female

DRUGS (1)
  1. TEMODAR [Suspect]
     Indication: GLIOBLASTOMA
     Dosage: 75 MG; QD; PO
     Route: 048

REACTIONS (2)
  - FEBRILE NEUTROPENIA [None]
  - PULMONARY EMBOLISM [None]
